FAERS Safety Report 7132357-5 (Version None)
Quarter: 2010Q4

REPORT INFORMATION
  Report Type: 
  Country: None (occurrence: None)
  Receive Date: 20101202
  Receipt Date: 20101123
  Transmission Date: 20110411
  Serious: Yes (Hospitalization, Other)
  Sender: FDA-Public Use
  Company Number: US-PURDUE-USA-2010-0052239

PATIENT
  Age: 51 Year
  Sex: Male
  Weight: 68.027 kg

DRUGS (1)
  1. OXYCONTIN [Suspect]
     Indication: PAIN
     Dosage: 10 MG, BID
     Dates: start: 20100920, end: 20101029

REACTIONS (13)
  - BREAKTHROUGH PAIN [None]
  - CARDIAC DISCOMFORT [None]
  - CHILLS [None]
  - DELIRIUM TREMENS [None]
  - DEPRESSION [None]
  - HYPERHIDROSIS [None]
  - NAUSEA [None]
  - PAIN [None]
  - PALPITATIONS [None]
  - SUICIDAL IDEATION [None]
  - TREMOR [None]
  - VOMITING [None]
  - WITHDRAWAL SYNDROME [None]
